FAERS Safety Report 4293848-8 (Version None)
Quarter: 2004Q1

REPORT INFORMATION
  Report Type: 
  Country: None (occurrence: None)
  Receive Date: 20040210
  Receipt Date: 20040205
  Transmission Date: 20041129
  Serious: Yes (Death, Hospitalization)
  Sender: FDA-Public Use
  Company Number: 200307089

PATIENT
  Age: 38 Year
  Sex: Male

DRUGS (1)
  1. TYLENOL ANALGESIC [Suspect]
     Indication: INFLUENZA LIKE ILLNESS
     Dosage: PO
     Route: 048
     Dates: start: 20031001

REACTIONS (2)
  - HEPATIC FAILURE [None]
  - LIVER TRANSPLANT [None]
